FAERS Safety Report 11139023 (Version 1)
Quarter: 2015Q2

REPORT INFORMATION
  Report Type: Spontaneous
  Country: US (occurrence: US)
  Receive Date: 20150527
  Receipt Date: 20150527
  Transmission Date: 20150821
  Serious: No
  Sender: FDA-Public Use
  Company Number: US-BIOGENIDEC-2015BI070585

PATIENT
  Age: 56 Year
  Sex: Female

DRUGS (12)
  1. TAMSULOSIN HCL [Concomitant]
     Active Substance: TAMSULOSIN
  2. NITROFURANTOIN (MACROCRYSTALS) [Concomitant]
     Active Substance: NITROFURANTOIN
  3. IBUPROFEN. [Concomitant]
     Active Substance: IBUPROFEN
  4. FOSAMAX [Concomitant]
     Active Substance: ALENDRONATE SODIUM
  5. AVONEX [Suspect]
     Active Substance: INTERFERON BETA-1A
     Indication: MULTIPLE SCLEROSIS
     Route: 030
     Dates: start: 20110322
  6. FISH OIL [Concomitant]
     Active Substance: FISH OIL
  7. METRONIDAZOLE. [Concomitant]
     Active Substance: METRONIDAZOLE
  8. TIZANIDINE HCL [Concomitant]
     Active Substance: TIZANIDINE HYDROCHLORIDE
  9. COENZYME Q10 [Concomitant]
     Active Substance: UBIDECARENONE
  10. ESTRACE [Concomitant]
     Active Substance: ESTRADIOL
  11. KETOCONAZOLE. [Concomitant]
     Active Substance: KETOCONAZOLE
  12. VITAMIN C [Concomitant]
     Active Substance: ASCORBIC ACID

REACTIONS (3)
  - Sluggishness [Unknown]
  - Poor quality sleep [Unknown]
  - Influenza like illness [Unknown]

NARRATIVE: CASE EVENT DATE: 201504
